FAERS Safety Report 9303539 (Version 2)
Quarter: 2014Q4

REPORT INFORMATION
  Report Type: Spontaneous
  Country: US (occurrence: None)
  Receive Date: 20141103
  Receipt Date: 20141103
  Transmission Date: 20150529
  Serious: Yes (Other)
  Sender: FDA-Public Use
  Company Number: 1304-464

PATIENT
  Age: 75 Year
  Sex: Male

DRUGS (4)
  1. LITHIUM [Concomitant]
     Active Substance: LITHIUM CARBONATE
  2. EYLEA [Suspect]
     Active Substance: AFLIBERCEPT
     Indication: AGE-RELATED MACULAR DEGENERATION
     Dosage: 2 MG, 1 IN 8 WEEKS, OPHTHALMIC
     Route: 047
     Dates: start: 20120316, end: 20130329
  3. LEXAPRO [Concomitant]
     Active Substance: ESCITALOPRAM OXALATE
  4. AREDS PRESERVISION (ASCORBIC ACID) [Concomitant]

REACTIONS (5)
  - Vitreal cells [None]
  - Anterior chamber flare [None]
  - Retinal haemorrhage [None]
  - Eye inflammation [None]
  - Vision blurred [None]

NARRATIVE: CASE EVENT DATE: 20140330
